FAERS Safety Report 11517536 (Version 3)
Quarter: 2015Q4

REPORT INFORMATION
  Report Type: Report from Study
  Country: CA (occurrence: CA)
  Receive Date: 20150917
  Receipt Date: 20151006
  Transmission Date: 20160304
  Serious: Yes (Hospitalization, Other)
  Sender: FDA-Public Use
  Company Number: CA-ABBVIE-15K-028-1405969-00

PATIENT
  Age: 55 Year
  Sex: Male
  Weight: 98.06 kg

DRUGS (2)
  1. HUMIRA [Suspect]
     Active Substance: ADALIMUMAB
     Indication: PSORIATIC ARTHROPATHY
     Route: 058
     Dates: start: 20101013, end: 20150706
  2. HUMIRA [Suspect]
     Active Substance: ADALIMUMAB
     Route: 058
     Dates: start: 20150722

REACTIONS (5)
  - Arterial occlusive disease [Not Recovered/Not Resolved]
  - Gastrointestinal surgery [Unknown]
  - Gait disturbance [Unknown]
  - Unevaluable event [Unknown]
  - Dyspnoea [Not Recovered/Not Resolved]

NARRATIVE: CASE EVENT DATE: 201507
